FAERS Safety Report 15421719 (Version 1)
Quarter: 2018Q3

REPORT INFORMATION
  Report Type: Spontaneous
  Country: US (occurrence: US)
  Receive Date: 20180924
  Receipt Date: 20180924
  Transmission Date: 20181010
  Serious: No
  Sender: FDA-Public Use
  Company Number: US-ALLERGAN-1832437US

PATIENT
  Age: 71 Year
  Sex: Female

DRUGS (1)
  1. LINZESS [Suspect]
     Active Substance: LINACLOTIDE
     Indication: CONSTIPATION
     Dosage: 72 ?G, (4 DOSES)
     Route: 048
     Dates: start: 201806

REACTIONS (3)
  - Urticaria [Recovered/Resolved]
  - Drug ineffective [Unknown]
  - Rash generalised [Recovering/Resolving]

NARRATIVE: CASE EVENT DATE: 20180624
